FAERS Safety Report 7178826-3 (Version None)
Quarter: 2010Q4

REPORT INFORMATION
  Report Type: 
  Country: None (occurrence: None)
  Receive Date: 20101217
  Receipt Date: 20101217
  Transmission Date: 20110411
  Serious: Yes (Hospitalization)
  Sender: FDA-Public Use
  Company Number: None

PATIENT
  Age: 55 Year
  Sex: Female
  Weight: 61.2356 kg

DRUGS (1)
  1. RECLAST [Suspect]
     Indication: OSTEOPOROSIS
     Dosage: 5 MG ONE DOSE IV DRIP
     Route: 041
     Dates: start: 20100928, end: 20100928

REACTIONS (8)
  - BONE PAIN [None]
  - DIARRHOEA [None]
  - HYPERMAGNESAEMIA [None]
  - HYPOPHOSPHATAEMIA [None]
  - MOVEMENT DISORDER [None]
  - NAUSEA [None]
  - PAIN [None]
  - VOMITING [None]
